FAERS Safety Report 11827113 (Version 1)
Quarter: 2015Q4

REPORT INFORMATION
  Report Type: Spontaneous
  Country: US (occurrence: US)
  Receive Date: 20151211
  Receipt Date: 20151211
  Transmission Date: 20160305
  Serious: Yes (Hospitalization, Other)
  Sender: FDA-Public Use
  Company Number: US-INDIVIOR LIMITED-INDV-086100-2015

PATIENT
  Age: 1 Year
  Sex: Male

DRUGS (1)
  1. SUBOXONE [Suspect]
     Active Substance: BUPRENORPHINE HYDROCHLORIDE\NALOXONE HYDROCHLORIDE
     Dosage: 8 MG
     Route: 065

REACTIONS (3)
  - Toxicity to various agents [Unknown]
  - Coma [Unknown]
  - Drug administered to patient of inappropriate age [Recovered/Resolved]
